FAERS Safety Report 8318696-0 (Version None)
Quarter: 2012Q1

REPORT INFORMATION
  Report Type: 
  Country: None (occurrence: None)
  Receive Date: 20120315
  Receipt Date: 20110603
  Transmission Date: 20120608
  Serious: Yes (Other)
  Sender: FDA-Public Use
  Company Number: PHHY2011US48791

PATIENT
  Age: 40 Year
  Sex: Male

DRUGS (1)
  1. GILENYA [Suspect]
     Indication: MULTIPLE SCLEROSIS
     Dosage: ORAL
     Route: 048

REACTIONS (4)
  - BALANCE DISORDER [None]
  - VISUAL ACUITY REDUCED [None]
  - PAIN [None]
  - MULTIPLE SCLEROSIS [None]
